FAERS Safety Report 23113146 (Version 6)
Quarter: 2024Q1

REPORT INFORMATION
  Report Type: Spontaneous
  Country: CA (occurrence: CA)
  Receive Date: 20231027
  Receipt Date: 20240227
  Transmission Date: 20240410
  Serious: Yes (Other)
  Sender: FDA-Public Use
  Company Number: CA-CELLTRION INC.-2023CA009447

PATIENT

DRUGS (10)
  1. INFLECTRA [Suspect]
     Active Substance: INFLIXIMAB-DYYB
     Indication: Crohn^s disease
     Dosage: 500 MG (5 MG/KG) WEEK 0 (WEEKS 0,2,6 THEN Q 8 WEEKS)
     Route: 042
     Dates: start: 20230426
  2. INFLECTRA [Suspect]
     Active Substance: INFLIXIMAB-DYYB
     Dosage: 500 MG (5 MG/KG) WEEK 2
     Route: 042
     Dates: start: 20230510
  3. INFLECTRA [Suspect]
     Active Substance: INFLIXIMAB-DYYB
     Dosage: 500 MG WEEK 6
     Route: 042
     Dates: start: 20230607
  4. INFLECTRA [Suspect]
     Active Substance: INFLIXIMAB-DYYB
     Dosage: 500 MG (EVERY 8 WEEK),WEEKS 0,2,6 THEN Q 8 WEEKS - ROUNDED TO THE NEAREST HUNDRED
     Route: 042
     Dates: start: 20230802
  5. INFLECTRA [Suspect]
     Active Substance: INFLIXIMAB-DYYB
     Dosage: 5 MG/KG (500 MG), EVERY 8 WEEKS
     Route: 042
     Dates: start: 20230927
  6. INFLECTRA [Suspect]
     Active Substance: INFLIXIMAB-DYYB
     Dosage: 10 MG/KG, EVERY 8 WEEKS, REINDUCTION THEN Q 8 WEEKS
     Route: 042
     Dates: start: 20230927
  7. INFLECTRA [Suspect]
     Active Substance: INFLIXIMAB-DYYB
     Dosage: 828 MG, WEEK 2 OF REINDUCTION
     Route: 042
     Dates: start: 20231017
  8. INFLECTRA [Suspect]
     Active Substance: INFLIXIMAB-DYYB
     Dosage: 900MG WEEKS 6
     Route: 042
     Dates: start: 20231115
  9. INFLECTRA [Suspect]
     Active Substance: INFLIXIMAB-DYYB
     Dosage: 10 MG/KG, EVERY 8 WEEKS, REINDUCTION THEN Q 8 WEEKS
     Route: 042
     Dates: start: 20240110
  10. PREDNISONE [Concomitant]
     Active Substance: PREDNISONE
     Dosage: 5 MG; PREDNISONE IN DESCENDING DOSE, ANOTHER 3 WEEKS

REACTIONS (24)
  - Chest discomfort [Recovered/Resolved]
  - Throat tightness [Recovered/Resolved]
  - Nasal congestion [Recovered/Resolved]
  - Speech disorder [Recovered/Resolved]
  - Feeling abnormal [Recovered/Resolved]
  - Agitation [Recovered/Resolved]
  - Erythema [Recovered/Resolved]
  - Lip swelling [Recovered/Resolved]
  - Drug level decreased [Unknown]
  - Drug specific antibody present [Unknown]
  - Off label use [Unknown]
  - Off label use [Unknown]
  - Intentional product use issue [Unknown]
  - Infusion site extravasation [Recovered/Resolved]
  - Blood pressure fluctuation [Unknown]
  - Anal fissure [Recovered/Resolved]
  - Arthralgia [Recovered/Resolved]
  - Condition aggravated [Recovered/Resolved]
  - Fatigue [Unknown]
  - Abscess [Not Recovered/Not Resolved]
  - Anal fissure [Not Recovered/Not Resolved]
  - Proctalgia [Not Recovered/Not Resolved]
  - Hypertension [Unknown]
  - Nervousness [Unknown]

NARRATIVE: CASE EVENT DATE: 20230101
